FAERS Safety Report 6229676-3 (Version None)
Quarter: 2009Q2

REPORT INFORMATION
  Report Type: 
  Country: None (occurrence: None)
  Receive Date: 20090615
  Receipt Date: 20090604
  Transmission Date: 20091009
  Serious: Yes (Other)
  Sender: FDA-Public Use
  Company Number: AU-ASTRAZENECA-2009AP02962

PATIENT
  Age: 55 Year
  Sex: Male
  Weight: 72 kg

DRUGS (2)
  1. SEROQUEL XR [Suspect]
     Indication: MANIA
     Route: 048
  2. OXAZEPAM [Concomitant]
     Route: 048

REACTIONS (2)
  - DELUSION [None]
  - MANIA [None]
